FAERS Safety Report 9002653 (Version 1)
Quarter: 2013Q1

REPORT INFORMATION
  Report Type: Spontaneous
  Country: US (occurrence: US)
  Receive Date: 20130107
  Receipt Date: 20130107
  Transmission Date: 20140127
  Serious: Yes (Disabling, Other)
  Sender: FDA-Public Use
  Company Number: US-PFIZER INC-2013005277

PATIENT
  Age: 61 Year
  Sex: Male
  Weight: 90.7 kg

DRUGS (6)
  1. LYRICA [Suspect]
     Indication: NERVE INJURY
     Dosage: TWO CAPSULES OF 50MG AND TWO CAPSULES OF 100MG AT AN UNKNOWN FREQUENCY
  2. LYRICA [Suspect]
     Dosage: UNK
  3. GEMFIBROZIL [Concomitant]
     Indication: BLOOD GLUCOSE ABNORMAL
     Dosage: UNK
  4. INSULIN [Concomitant]
     Indication: BLOOD GLUCOSE ABNORMAL
     Dosage: UNK. AS NEEDED
  5. NEURONTIN [Concomitant]
     Dosage: UNK
  6. POTASSIUM CHLORIDE [Concomitant]
     Dosage: UNK

REACTIONS (1)
  - Leg amputation [Not Recovered/Not Resolved]
